FAERS Safety Report 20492683 (Version 3)
Quarter: 2022Q1

REPORT INFORMATION
  Report Type: Report from Study
  Country: KR (occurrence: None)
  Receive Date: 20220219
  Receipt Date: 20220315
  Transmission Date: 20220423
  Serious: Yes (Hospitalization)
  Sender: FDA-Public Use
  Company Number: KR-ROCHE-2982103

PATIENT
  Age: 36 Year
  Sex: Female
  Weight: 65 kg

DRUGS (17)
  1. ATEZOLIZUMAB [Suspect]
     Active Substance: ATEZOLIZUMAB
     Indication: HER2 positive breast cancer
     Dosage: ON 01/DEC/2021, MOST RECENT DOSE WAS ADMINISTERED.?START DATE OF MOST RECENT DOSE OF STUDY DRUG PRIO
     Route: 041
     Dates: start: 20210930
  2. ADO-TRASTUZUMAB EMTANSINE [Suspect]
     Active Substance: ADO-TRASTUZUMAB EMTANSINE
     Indication: HER2 positive breast cancer
     Dosage: ON 01/DEC/2021, MOST RECENT DOSE WAS ADMINISTERED.?LAST DOSE ADMINISTERED WAS 229.32 MG/KG.?START DA
     Route: 042
     Dates: start: 20210930
  3. K-CAB [Concomitant]
     Dates: start: 20211206
  4. AROMASIN [Concomitant]
     Active Substance: EXEMESTANE
     Indication: Breast cancer
     Route: 048
     Dates: start: 20210901
  5. LEUPLIN [Concomitant]
     Active Substance: LEUPROLIDE ACETATE
     Indication: Ovarian failure
     Dates: start: 20210929, end: 20210929
  6. LEUPLIN [Concomitant]
     Active Substance: LEUPROLIDE ACETATE
     Dates: start: 20211027, end: 20211027
  7. LEUPLIN [Concomitant]
     Active Substance: LEUPROLIDE ACETATE
     Dates: start: 20211125, end: 20211125
  8. TRANILAST [Concomitant]
     Active Substance: TRANILAST
     Dates: start: 20210826, end: 20211025
  9. CALTEO [Concomitant]
     Dates: start: 20210901
  10. SODIUM CHLORIDE [Concomitant]
     Active Substance: SODIUM CHLORIDE
     Dates: start: 20210930, end: 20210930
  11. VEMACAST [Concomitant]
     Dates: start: 20211201, end: 20211214
  12. MODERNA COVID-19 VACCINE [Concomitant]
     Active Substance: ELASOMERAN
     Dates: start: 20211126, end: 20211126
  13. PREDNISOLONE [Concomitant]
     Active Substance: PREDNISOLONE
     Dates: start: 20211206
  14. PREDNISOLONE [Concomitant]
     Active Substance: PREDNISOLONE
     Route: 048
     Dates: start: 20211212, end: 20211221
  15. SULFAMETHOXAZOLE\TRIMETHOPRIM [Concomitant]
     Active Substance: SULFAMETHOXAZOLE\TRIMETHOPRIM
     Dates: start: 20211206
  16. PANTOPRAZOLE SODIUM [Concomitant]
     Active Substance: PANTOPRAZOLE SODIUM
     Dates: start: 20211211, end: 20211211
  17. METHYSOL [Concomitant]
     Route: 042
     Dates: start: 20211211, end: 20211211

REACTIONS (2)
  - Aspartate aminotransferase increased [Recovered/Resolved]
  - Alanine aminotransferase increased [Recovered/Resolved]

NARRATIVE: CASE EVENT DATE: 20211020
